FAERS Safety Report 9827935 (Version 2)
Quarter: 2014Q1

REPORT INFORMATION
  Report Type: Spontaneous
  Country: US (occurrence: US)
  Receive Date: 20140117
  Receipt Date: 20140117
  Transmission Date: 20141002
  Serious: Yes (Hospitalization)
  Sender: FDA-Public Use
  Company Number: US-B.I. PHARMACEUTICALS,INC./RIDGEFIELD-2013-BI-23013BP

PATIENT
  Sex: Male
  Weight: 80.74 kg

DRUGS (9)
  1. PRADAXA [Suspect]
     Indication: ATRIAL FIBRILLATION
     Dosage: 300 MG
     Dates: start: 20110818
  2. IRON [Concomitant]
     Dosage: 325 MG
     Route: 048
  3. SIMVASTATIN [Concomitant]
     Dosage: 40 MG
     Route: 048
  4. LEVOTHYROXINE [Concomitant]
     Dosage: 50 MCG
     Route: 048
  5. NEXIUM [Concomitant]
     Dosage: 40 MG
     Route: 048
  6. LASIX [Concomitant]
     Route: 048
  7. LISINOPRIL [Concomitant]
     Dosage: 5 MG
     Route: 048
  8. TOPROL XL [Concomitant]
     Dosage: 25 MG
     Route: 048
  9. ASPIRIN [Concomitant]
     Dosage: 81 MG
     Route: 048

REACTIONS (4)
  - Atrial fibrillation [Recovered/Resolved]
  - Retroperitoneal haemorrhage [Recovered/Resolved]
  - Peritoneal haemorrhage [Recovered/Resolved]
  - Retroperitoneal haematoma [Recovered/Resolved]
